FAERS Safety Report 18533480 (Version 5)
Quarter: 2024Q4

REPORT INFORMATION
  Report Type: Other
  Country: CA (occurrence: CA)
  Receive Date: 20201123
  Receipt Date: 20241001
  Transmission Date: 20250115
  Serious: Yes (Life-Threatening, Other)
  Sender: APOTEX
  Company Number: CA-APOTEX-2020AP022036

PATIENT
  Age: 40 Year
  Sex: Female

DRUGS (10)
  1. GABAPENTIN [Interacting]
     Active Substance: GABAPENTIN
     Indication: Migraine
     Dosage: 300 MILLIGRAM
     Route: 065
  2. GABAPENTIN [Interacting]
     Active Substance: GABAPENTIN
     Dosage: 600 MILLIGRAM
     Route: 065
  3. GABAPENTIN [Interacting]
     Active Substance: GABAPENTIN
     Dosage: 900 MILLIGRAM, QD
     Route: 065
  4. TOPIRAMATE [Interacting]
     Active Substance: TOPIRAMATE
     Indication: Product used for unknown indication
     Dosage: UNK
     Route: 065
  5. TOPIRAMATE [Interacting]
     Active Substance: TOPIRAMATE
     Dosage: 75 MILLIGRAM
     Route: 065
  6. ZOPICLONE [Interacting]
     Active Substance: ZOPICLONE
     Indication: Product used for unknown indication
     Dosage: UNK
     Route: 065
  7. AIMOVIG [Interacting]
     Active Substance: ERENUMAB-AOOE
     Indication: Migraine
     Dosage: UNK
     Route: 065
  8. AIMOVIG [Interacting]
     Active Substance: ERENUMAB-AOOE
     Dosage: 140 MILLIGRAM, Q.M.T.
     Route: 058
  9. TOPAMAX [Interacting]
     Active Substance: TOPIRAMATE
     Indication: Product used for unknown indication
     Dosage: UNK
     Route: 065
  10. PANTOPRAZOLE [Concomitant]
     Active Substance: PANTOPRAZOLE
     Indication: Product used for unknown indication
     Dosage: UNK
     Route: 065

REACTIONS (20)
  - Blood pressure increased [Not Recovered/Not Resolved]
  - Drug interaction [Not Recovered/Not Resolved]
  - Feeling hot [Not Recovered/Not Resolved]
  - Aphasia [Not Recovered/Not Resolved]
  - Hyperhidrosis [Not Recovered/Not Resolved]
  - Migraine [Not Recovered/Not Resolved]
  - Gastrointestinal haemorrhage [Not Recovered/Not Resolved]
  - Panic attack [Not Recovered/Not Resolved]
  - Epigastric discomfort [Recovered/Resolved]
  - Constipation [Recovered/Resolved]
  - Feeling abnormal [Recovered/Resolved]
  - Osteitis [Not Recovered/Not Resolved]
  - Peptic ulcer perforation [Not Recovered/Not Resolved]
  - Sepsis [Not Recovered/Not Resolved]
  - Brain fog [Not Recovered/Not Resolved]
  - Concomitant disease aggravated [Not Recovered/Not Resolved]
  - Diarrhoea [Not Recovered/Not Resolved]
  - Amnesia [Not Recovered/Not Resolved]
  - Mental impairment [Recovered/Resolved]
  - Drug ineffective [Recovered/Resolved]
